FAERS Safety Report 4903761-8 (Version None)
Quarter: 2006Q1

REPORT INFORMATION
  Report Type: 
  Country: None (occurrence: None)
  Receive Date: 20060208
  Receipt Date: 20060127
  Transmission Date: 20060701
  Serious: Yes (Hospitalization, Other)
  Sender: FDA-Public Use
  Company Number: FR-JNJFOC-20060105972

PATIENT
  Sex: Female
  Weight: 60 kg

DRUGS (4)
  1. REMICADE [Suspect]
     Indication: ENTERITIS
     Dosage: THIS WAS PATIENT'S 6TH COURSE.
     Route: 042
  2. HYDROCORTISONE SODIUM SUCCINATE [Suspect]
  3. POLARAMINE [Suspect]
     Route: 042
  4. IMUREL [Concomitant]
     Route: 048

REACTIONS (6)
  - ATRIOVENTRICULAR BLOCK COMPLETE [None]
  - ATRIOVENTRICULAR EXTRASYSTOLES [None]
  - ELECTROCARDIOGRAM ABNORMAL [None]
  - LOSS OF CONSCIOUSNESS [None]
  - MALAISE [None]
  - SINUS BRADYCARDIA [None]
